FAERS Safety Report 5886278-6 (Version None)
Quarter: 2008Q3

REPORT INFORMATION
  Report Type: 
  Country: None (occurrence: None)
  Receive Date: 20080917
  Receipt Date: 20080908
  Transmission Date: 20090109
  Serious: Yes (Hospitalization)
  Sender: FDA-Public Use
  Company Number: A0716265A

PATIENT
  Age: 45 Year
  Sex: Female
  Weight: 168.2 kg

DRUGS (11)
  1. AVANDIA [Suspect]
     Dosage: 4MG TWICE PER DAY
     Route: 048
     Dates: start: 20010101, end: 20070615
  2. INSULIN [Concomitant]
     Dates: start: 20040101
  3. FUROSEMIDE [Concomitant]
  4. CELEBREX [Concomitant]
  5. ZOCOR [Concomitant]
  6. LIPITOR [Concomitant]
  7. RISPERDAL [Concomitant]
  8. DEPAKOTE [Concomitant]
  9. VALTREX [Concomitant]
  10. NAPROXEN [Concomitant]
  11. POTASSIUM CHLORIDE [Concomitant]

REACTIONS (3)
  - CARDIAC FAILURE CONGESTIVE [None]
  - MYOCARDIAL INFARCTION [None]
  - WEIGHT INCREASED [None]
